FAERS Safety Report 5220158-4 (Version None)
Quarter: 2006Q4

REPORT INFORMATION
  Report Type: 
  Country: None (occurrence: None)
  Receive Date: 20061121
  Receipt Date: 20060905
  Transmission Date: 20070319
  Serious: No
  Sender: FDA-Public Use
  Company Number: TPA2006A01516

PATIENT
  Age: 31 Year
  Sex: Male
  Weight: 127.0072 kg

DRUGS (7)
  1. ROZEREM [Suspect]
     Indication: CIRCADIAN RHYTHM SLEEP DISORDER
     Dosage: 8 MG, HS, PER ORAL
     Route: 048
     Dates: start: 20060711, end: 20060820
  2. ROZEREM [Suspect]
     Indication: CIRCADIAN RHYTHM SLEEP DISORDER
     Dosage: 8 MG, HS, PER ORAL
     Route: 048
     Dates: start: 20060805, end: 20060820
  3. METFORMIN HCL [Concomitant]
  4. TOPROL-XL [Concomitant]
  5. LISINOPRIL [Concomitant]
  6. PRILOSEC [Concomitant]
  7. LIPITOR (ATORVASTATIN)Q [Concomitant]

REACTIONS (2)
  - POOR QUALITY SLEEP [None]
  - SOMNOLENCE [None]
